FAERS Safety Report 5392940-4 (Version None)
Quarter: 2007Q3

REPORT INFORMATION
  Report Type: 
  Country: None (occurrence: None)
  Receive Date: 20070719
  Receipt Date: 20070712
  Transmission Date: 20080115
  Serious: Yes (Hospitalization, Other)
  Sender: FDA-Public Use
  Company Number: 2007BI014600

PATIENT
  Age: 57 Year
  Sex: Female
  Weight: 63.5036 kg

DRUGS (2)
  1. AVONEX LYOPHILIZED [Suspect]
     Indication: MULTIPLE SCLEROSIS
     Dosage: 30 UG;QW; IM
     Route: 030
     Dates: start: 19960801, end: 20030101
  2. AVONEX [Suspect]
     Indication: MULTIPLE SCLEROSIS
     Dosage: 30 UG; QW; IM
     Route: 030
     Dates: start: 20030101

REACTIONS (8)
  - BLOOD UREA INCREASED [None]
  - CORONARY ARTERY OCCLUSION [None]
  - DEAFNESS [None]
  - DIABETES MELLITUS [None]
  - HYPERTENSION [None]
  - INJECTION SITE BRUISING [None]
  - LUNG NEOPLASM [None]
  - TRIGEMINAL NEURALGIA [None]
